FAERS Safety Report 6540281-1 (Version None)
Quarter: 2010Q1

REPORT INFORMATION
  Report Type: 
  Country: None (occurrence: None)
  Receive Date: 20100115
  Receipt Date: 20090102
  Transmission Date: 20100710
  Serious: No
  Sender: FDA-Public Use
  Company Number: US-ABBOTT-09P-163-0495722-00

PATIENT
  Sex: Female

DRUGS (10)
  1. ADVICOR [Suspect]
     Indication: BLOOD CHOLESTEROL INCREASED
     Dosage: 1000/20MG QHS
     Route: 048
     Dates: start: 20060101
  2. NIACIN [Concomitant]
     Indication: BLOOD CHOLESTEROL INCREASED
     Route: 048
  3. BENICAR [Concomitant]
     Indication: CARDIAC DISORDER
  4. METOPROLOL [Concomitant]
     Indication: CARDIAC DISORDER
  5. IMDUR [Concomitant]
     Indication: CARDIAC DISORDER
  6. METFORMIN [Concomitant]
     Indication: BLOOD GLUCOSE INCREASED
  7. POTASSIUM [Concomitant]
     Indication: ANAEMIA
     Dates: start: 20070101
  8. CLONIDINE [Concomitant]
     Indication: CARDIAC DISORDER
  9. PLAVIX [Concomitant]
     Indication: CARDIAC DISORDER
  10. ASPIRIN [Concomitant]
     Indication: CARDIAC DISORDER
     Route: 048

REACTIONS (4)
  - ANAEMIA [None]
  - OEDEMA PERIPHERAL [None]
  - PRURITUS [None]
  - RASH [None]
